FAERS Safety Report 7323547-7 (Version None)
Quarter: 2011Q1

REPORT INFORMATION
  Report Type: 
  Country: None (occurrence: None)
  Receive Date: 20110301
  Receipt Date: 20110218
  Transmission Date: 20110831
  Serious: Yes (Other)
  Sender: FDA-Public Use
  Company Number: JP-SANOFI-AVENTIS-2011SA010682

PATIENT
  Age: 80 Year
  Sex: Male

DRUGS (2)
  1. LASIX [Suspect]
     Route: 048
     Dates: start: 20090201, end: 20090301
  2. ALL OTHER THERAPEUTIC PRODUCTS [Suspect]

REACTIONS (1)
  - RENAL FAILURE ACUTE [None]
